FAERS Safety Report 5184484-X (Version None)
Quarter: 2006Q4

REPORT INFORMATION
  Report Type: 
  Country: None (occurrence: None)
  Receive Date: 20061220
  Receipt Date: 20060309
  Transmission Date: 20070319
  Serious: No
  Sender: FDA-Public Use
  Company Number: US-GLAXOSMITHKLINE-A0596893A

PATIENT
  Age: 36 Year
  Sex: Female

DRUGS (1)
  1. TARGET NTS 7MG [Suspect]
     Dates: end: 20060308

REACTIONS (2)
  - CHEST PAIN [None]
  - DYSPNOEA [None]
